FAERS Safety Report 20903288 (Version 4)
Quarter: 2022Q3

REPORT INFORMATION
  Report Type: Spontaneous
  Country: JP (occurrence: JP)
  Receive Date: 20220601
  Receipt Date: 20220822
  Transmission Date: 20221026
  Serious: Yes (Death, Life-Threatening, Hospitalization)
  Sender: FDA-Public Use
  Company Number: JP-002147023-NVSJ2022JP090574

PATIENT

DRUGS (3)
  1. RUXOLITINIB [Suspect]
     Active Substance: RUXOLITINIB
     Indication: Primary myelofibrosis
     Dosage: 20 MG, BID
     Route: 048
     Dates: start: 20220407, end: 20220514
  2. HYDREA [Suspect]
     Active Substance: HYDROXYUREA
     Indication: Primary myelofibrosis
     Dosage: 500 MG, BID
     Route: 048
     Dates: start: 20220407, end: 20220514
  3. PREDONINE [Suspect]
     Active Substance: PREDNISOLONE
     Indication: Primary myelofibrosis
     Dosage: 5 MG, QD
     Route: 048
     Dates: start: 20220407, end: 20220514

REACTIONS (5)
  - Listeriosis [Fatal]
  - Immunosuppression [Unknown]
  - Meningitis listeria [Recovering/Resolving]
  - Malignant neoplasm progression [Fatal]
  - Primary myelofibrosis [Fatal]

NARRATIVE: CASE EVENT DATE: 20220407
